FAERS Safety Report 15154917 (Version 1)
Quarter: 2018Q3

REPORT INFORMATION
  Report Type: Spontaneous
  Country: US (occurrence: US)
  Receive Date: 20180620
  Receipt Date: 20180620
  Transmission Date: 20181010
  Serious: Yes (Disabling, Other)
  Sender: FDA-Public Use
  Company Number: None

PATIENT
  Age: 58 Year
  Sex: Female
  Weight: 56.25 kg

DRUGS (11)
  1. ESTROGEN [Concomitant]
     Active Substance: ESTROGENS
  2. TRAMADOL. [Concomitant]
     Active Substance: TRAMADOL
  3. NEXIUM [Concomitant]
     Active Substance: ESOMEPRAZOLE MAGNESIUM
  4. PROLIA [Suspect]
     Active Substance: DENOSUMAB
     Indication: OSTEOPOROSIS
     Dosage: ?          OTHER FREQUENCY:1 EVERY 6 MOS;?
     Route: 058
     Dates: start: 20180509, end: 20180509
  5. POWER PORT [Concomitant]
  6. MYLANTA [Concomitant]
     Active Substance: ALUMINUM HYDROXIDE\DIMETHICONE\MAGNESIUM HYDROXIDE
  7. FIORICET [Concomitant]
     Active Substance: ACETAMINOPHEN\BUTALBITAL\CAFFEINE
  8. STEROIDS [Concomitant]
     Active Substance: UNSPECIFIED INGREDIENT
  9. TUMS [Concomitant]
     Active Substance: CALCIUM CARBONATE
  10. ATARAX [Concomitant]
     Active Substance: HYDROXYZINE HYDROCHLORIDE
  11. ALLEGRA [Concomitant]
     Active Substance: FEXOFENADINE HYDROCHLORIDE

REACTIONS (11)
  - Fall [None]
  - Pruritus [None]
  - Fatigue [None]
  - Dizziness [None]
  - Nausea [None]
  - Blood calcium decreased [None]
  - Neck pain [None]
  - Back pain [None]
  - Arthralgia [None]
  - Vertigo [None]
  - Gait disturbance [None]

NARRATIVE: CASE EVENT DATE: 20180509
